FAERS Safety Report 21563729 (Version 2)
Quarter: 2022Q4

REPORT INFORMATION
  Report Type: Spontaneous
  Country: US (occurrence: US)
  Receive Date: 20221108
  Receipt Date: 20221115
  Transmission Date: 20230113
  Serious: Yes (Hospitalization, Other)
  Sender: FDA-Public Use
  Company Number: US-BRISTOL-MYERS SQUIBB COMPANY-2022-130948

PATIENT
  Age: 86 Year
  Sex: Female
  Weight: 57.15 kg

DRUGS (1)
  1. REVLIMID [Suspect]
     Active Substance: LENALIDOMIDE
     Indication: Plasma cell myeloma
     Dosage: 10 MG, 3 WEEKS ON 1 WEEK OFF
     Route: 048
     Dates: end: 20221012

REACTIONS (3)
  - Intestinal obstruction [Recovering/Resolving]
  - Diarrhoea [Unknown]
  - Fatigue [Unknown]
